FAERS Safety Report 15385123 (Version 3)
Quarter: 2018Q4

REPORT INFORMATION
  Report Type: Spontaneous
  Country: US (occurrence: US)
  Receive Date: 20180914
  Receipt Date: 20181114
  Transmission Date: 20190204
  Serious: Yes (Death)
  Sender: FDA-Public Use
  Company Number: US-ASTRAZENECA-2018SF05692

PATIENT
  Sex: Male

DRUGS (2)
  1. TAGRISSO [Suspect]
     Active Substance: OSIMERTINIB
     Route: 048
  2. PULMICORT FLEXHALER [Suspect]
     Active Substance: BUDESONIDE
     Dosage: 90 MCG, 2 PUFFS TWICE A DAY
     Route: 055

REACTIONS (6)
  - Device issue [Unknown]
  - Device failure [Unknown]
  - Glioblastoma [Fatal]
  - Intentional product misuse [Unknown]
  - Liver disorder [Fatal]
  - Extra dose administered [Unknown]
